FAERS Safety Report 12907725 (Version 1)
Quarter: 2016Q4

REPORT INFORMATION
  Report Type: Spontaneous
  Country: DE (occurrence: DE)
  Receive Date: 20161103
  Receipt Date: 20161103
  Transmission Date: 20170207
  Serious: Yes (Death, Hospitalization)
  Sender: FDA-Public Use
  Company Number: DE-SA-2016SA200655

PATIENT
  Age: 90 Year
  Sex: Female
  Weight: 62 kg

DRUGS (7)
  1. CLOPIDOGREL BISULFATE. [Suspect]
     Active Substance: CLOPIDOGREL BISULFATE
     Indication: ACUTE CORONARY SYNDROME
     Route: 048
     Dates: start: 20161012, end: 20161025
  2. APIXABAN [Suspect]
     Active Substance: APIXABAN
     Route: 065
  3. ASPIRIN. [Suspect]
     Active Substance: ASPIRIN
     Route: 048
     Dates: start: 20161012, end: 20161025
  4. PHENPROCOUMON [Suspect]
     Active Substance: PHENPROCOUMON
     Route: 048
     Dates: start: 20161012, end: 20161013
  5. PROTHROMBIN COMPLEX CONCENTRATE NOS [Concomitant]
     Active Substance: COAGULATION FACTOR IX HUMAN\COAGULATION FACTOR VII HUMAN\COAGULATION FACTOR X HUMAN\PROTHROMBIN
     Indication: HAEMORRHAGE
     Dosage: DOSE: 1200 IE
     Route: 042
     Dates: start: 20161025
  6. CLOPIDOGREL BISULFATE. [Suspect]
     Active Substance: CLOPIDOGREL BISULFATE
     Indication: ATRIAL FIBRILLATION
     Route: 048
     Dates: start: 20161012, end: 20161025
  7. AMIODARONE [Concomitant]
     Active Substance: AMIODARONE
     Indication: VENTRICULAR FIBRILLATION
     Route: 042
     Dates: start: 20161025

REACTIONS (4)
  - Dysphagia [Unknown]
  - Ventricular fibrillation [Fatal]
  - Pneumothorax [Unknown]
  - Gastric haemorrhage [Unknown]
